FAERS Safety Report 8174974-X (Version None)
Quarter: 2012Q1

REPORT INFORMATION
  Report Type: 
  Country: None (occurrence: None)
  Receive Date: 20120229
  Receipt Date: 20120220
  Transmission Date: 20120608
  Serious: Yes (Other)
  Sender: FDA-Public Use
  Company Number: PHHY2012CA014598

PATIENT
  Age: 64 Year
  Sex: Female

DRUGS (7)
  1. VENLAFAXINE HCL EXTENDED-RELEASE [Concomitant]
     Dosage: 112.5 MG, QD
     Route: 047
  2. PHENYTOIN SODIUM [Interacting]
     Indication: EPILEPSY
     Dosage: 200 MG, QD
     Route: 048
  3. DOCUSATE SODIUM [Concomitant]
     Dosage: 100 MG, BID
     Route: 048
  4. IRINOTECAN HCL [Concomitant]
     Indication: COLORECTAL CANCER METASTATIC
  5. FLUOROURACIL [Suspect]
     Indication: COLORECTAL CANCER METASTATIC
  6. DIDRONATE + CALSIUM [Concomitant]
     Dosage: 1 DF, QD
     Route: 048
  7. LEUCOVORIN CALCIUM [Concomitant]
     Indication: COLORECTAL CANCER METASTATIC

REACTIONS (7)
  - ATAXIA [None]
  - DRUG LEVEL INCREASED [None]
  - BALANCE DISORDER [None]
  - SOMNOLENCE [None]
  - DIZZINESS [None]
  - HYPERREFLEXIA [None]
  - DRUG INTERACTION [None]
